FAERS Safety Report 18897115 (Version 1)
Quarter: 2021Q1

REPORT INFORMATION
  Report Type: Spontaneous
  Country: US (occurrence: US)
  Receive Date: 20210212
  Receipt Date: 20210212
  Transmission Date: 20210420
  Serious: Yes (Hospitalization)
  Sender: FDA-Public Use
  Company Number: None

PATIENT
  Age: 69 Year
  Sex: Female
  Weight: 144.4 kg

DRUGS (10)
  1. FLUTICASONE NASAL [Concomitant]
     Active Substance: FLUTICASONE
  2. NIFEDIPINE. [Concomitant]
     Active Substance: NIFEDIPINE
  3. CETIRIZINE [Concomitant]
     Active Substance: CETIRIZINE HYDROCHLORIDE
  4. METFORMIN [Concomitant]
     Active Substance: METFORMIN HYDROCHLORIDE
  5. BAMLANIVIMAB FOR EUA [Suspect]
     Active Substance: BAMLANIVIMAB
     Indication: COVID-19
     Route: 042
     Dates: start: 20210112, end: 20210112
  6. INSULIN GLARGINE [Concomitant]
     Active Substance: INSULIN GLARGINE
  7. LOSARTAN. [Concomitant]
     Active Substance: LOSARTAN
  8. ASPIRIN. [Concomitant]
     Active Substance: ASPIRIN
  9. SITAGLIPTIN [Concomitant]
     Active Substance: SITAGLIPTIN
  10. HYDROCHLOROTHIAZIDE/TRIAMTERENE [Concomitant]
     Active Substance: HYDROCHLOROTHIAZIDE\TRIAMTERENE

REACTIONS (8)
  - Stridor [None]
  - Dyspnoea [None]
  - Hypoxia [None]
  - Respiratory distress [None]
  - Acute respiratory distress syndrome [None]
  - Oxygen saturation decreased [None]
  - Respiratory failure [None]
  - Thyroid mass [None]

NARRATIVE: CASE EVENT DATE: 20210120
